FAERS Safety Report 6355009-8 (Version None)
Quarter: 2009Q3

REPORT INFORMATION
  Report Type: 
  Country: None (occurrence: None)
  Receive Date: 20090914
  Receipt Date: 20090907
  Transmission Date: 20100115
  Serious: Yes (Hospitalization)
  Sender: FDA-Public Use
  Company Number: B0482974B

PATIENT
  Sex: Male
  Weight: 8 kg

DRUGS (8)
  1. ABACAVIR [Suspect]
     Indication: HIV INFECTION
     Dosage: 80MG TWICE PER DAY
     Route: 048
     Dates: start: 20070522, end: 20090727
  2. LAMIVUDINE [Suspect]
     Indication: HIV INFECTION
     Dosage: 40MG TWICE PER DAY
     Route: 048
     Dates: start: 20070522, end: 20090727
  3. ZIDOVUDINE [Suspect]
     Indication: HIV INFECTION
     Dosage: 90MG TWICE PER DAY
     Route: 048
     Dates: start: 20081008
  4. COTRIM [Suspect]
     Dosage: 240MG PER DAY
     Route: 048
     Dates: start: 20070504
  5. NEVIRAPINE [Suspect]
     Indication: HIV INFECTION
     Route: 048
     Dates: start: 20070522, end: 20071008
  6. MULTI-VITAMIN [Concomitant]
     Dosage: 5ML PER DAY
     Route: 048
  7. DIDEOXYINOSINE [Concomitant]
     Route: 065
     Dates: start: 20090728
  8. UNKNOWN ANTIRETROVIRAL TREATMENT [Concomitant]
     Route: 065
     Dates: start: 20090728

REACTIONS (16)
  - ANAEMIA [None]
  - ASTHENIA [None]
  - BRONCHOPNEUMONIA [None]
  - COUGH [None]
  - DRUG TOXICITY [None]
  - LYMPHOMA [None]
  - NEUTROPENIA [None]
  - ORAL CANDIDIASIS [None]
  - PLATELET COUNT DECREASED [None]
  - PYREXIA [None]
  - SEPSIS [None]
  - STOMATITIS [None]
  - TUBERCULOSIS [None]
  - VOMITING [None]
  - WEIGHT DECREASED [None]
  - WEIGHT GAIN POOR [None]
